FAERS Safety Report 9525037 (Version 1)
Quarter: 2013Q3

REPORT INFORMATION
  Report Type: Spontaneous
  Country: US (occurrence: None)
  Receive Date: 20130913
  Receipt Date: 20130913
  Transmission Date: 20140515
  Serious: Yes (Death)
  Sender: FDA-Public Use
  Company Number: None

PATIENT
  Age: 72 Year
  Sex: Female

DRUGS (1)
  1. SUTENT [Suspect]
     Indication: RENAL CANCER
     Dosage: 50 MG BID PO 28 DAYS ON 14 OFF
     Route: 048
     Dates: start: 20130810, end: 20130907

REACTIONS (4)
  - Opportunistic infection [None]
  - Multi-organ failure [None]
  - Immunodeficiency [None]
  - Radiation injury [None]
